FAERS Safety Report 8860990 (Version 3)
Quarter: 2014Q4

REPORT INFORMATION
  Report Type: Report from Study
  Country: SE (occurrence: SE)
  Receive Date: 20121025
  Receipt Date: 20141028
  Transmission Date: 20150529
  Serious: Yes (Death, Hospitalization)
  Sender: FDA-Public Use
  Company Number: SE-009507513-0612USA01628

PATIENT
  Age: 69 Year
  Sex: Female
  Weight: 73 kg

DRUGS (9)
  1. EZETIMIBE AND SIMVASTATIN [Suspect]
     Active Substance: EZETIMIBE\SIMVASTATIN
     Indication: ACUTE CORONARY SYNDROME
     Dosage: UNK
     Route: 048
     Dates: start: 20060728
  2. INSULIN [Concomitant]
     Active Substance: INSULIN NOS
     Dosage: 24 E
     Route: 058
     Dates: start: 20040415
  3. METFORMIN [Suspect]
     Active Substance: METFORMIN HYDROCHLORIDE
     Dosage: 1500 MG, DAILY
     Route: 048
     Dates: start: 20000203
  4. ASPIRIN. [Concomitant]
     Active Substance: ASPIRIN
     Dosage: 75 MG,DAILY
     Route: 048
     Dates: start: 19940630
  5. CYANOCOBALAMIN. [Concomitant]
     Active Substance: CYANOCOBALAMIN
     Dosage: 1 MG, DAILY
     Route: 048
     Dates: start: 20050131
  6. BISOPROLOL [Concomitant]
     Active Substance: BISOPROLOL
     Dosage: 5 MG,DAILY
     Route: 048
     Dates: start: 20060509
  7. HYDROCHLOROTHIAZIDE. [Suspect]
     Active Substance: HYDROCHLOROTHIAZIDE
     Dosage: 25 MG, DAILY
     Route: 048
     Dates: start: 20050428
  8. SIMVASTATIN. [Concomitant]
     Active Substance: SIMVASTATIN
     Dosage: 40 MG, DAILY
     Route: 048
     Dates: start: 20061004
  9. LOSARTAN POTASSIUM. [Suspect]
     Active Substance: LOSARTAN POTASSIUM
     Dosage: 100 MG,DAILY
     Route: 048
     Dates: start: 20050428

REACTIONS (1)
  - Renal tubular necrosis [Fatal]

NARRATIVE: CASE EVENT DATE: 20061014
